FAERS Safety Report 7480202-0 (Version None)
Quarter: 2011Q2

REPORT INFORMATION
  Report Type: 
  Country: None (occurrence: None)
  Receive Date: 20110516
  Receipt Date: 20110506
  Transmission Date: 20111010
  Serious: No
  Sender: FDA-Public Use
  Company Number: US-BIOGENIDEC-2011BI017418

PATIENT
  Sex: Female

DRUGS (2)
  1. TYSABRI [Suspect]
     Indication: MULTIPLE SCLEROSIS
     Route: 042
     Dates: start: 20110207
  2. TYSABRI [Suspect]
     Route: 042
     Dates: start: 20061127, end: 20100305

REACTIONS (5)
  - UNDERDOSE [None]
  - BRONCHITIS [None]
  - WHEEZING [None]
  - CHEST PAIN [None]
  - DERMATITIS CONTACT [None]
